FAERS Safety Report 10358009 (Version 2)
Quarter: 2014Q3

REPORT INFORMATION
  Report Type: Spontaneous
  Country: US (occurrence: US)
  Receive Date: 20140801
  Receipt Date: 20140929
  Transmission Date: 20150326
  Serious: Yes (Hospitalization)
  Sender: FDA-Public Use
  Company Number: US-BAYER-2014-111338

PATIENT
  Age: 22 Year
  Sex: Female
  Weight: 50.79 kg

DRUGS (1)
  1. MIRENA [Suspect]
     Active Substance: LEVONORGESTREL
     Indication: CONTRACEPTION
     Dosage: 20 MCG/24HR, CONT
     Route: 015
     Dates: start: 20111114, end: 20130502

REACTIONS (10)
  - Post procedural discomfort [None]
  - Abdominal pain [None]
  - Uterine perforation [None]
  - Injury [None]
  - Pelvic pain [None]
  - Depression [None]
  - Anxiety [None]
  - Device issue [None]
  - Infection [None]
  - Medical device pain [None]

NARRATIVE: CASE EVENT DATE: 2011
